FAERS Safety Report 18325041 (Version 8)
Quarter: 2025Q2

REPORT INFORMATION
  Report Type: Spontaneous
  Country: US (occurrence: US)
  Receive Date: 20200929
  Receipt Date: 20250418
  Transmission Date: 20250717
  Serious: Yes (Other)
  Sender: PFIZER
  Company Number: US-PFIZER INC-2020229482

PATIENT
  Age: 64 Year
  Sex: Female
  Weight: 72.109 kg

DRUGS (3)
  1. PREMPRO [Suspect]
     Active Substance: ESTROGENS, CONJUGATED\MEDROXYPROGESTERONE ACETATE
  2. TYLENOL [Concomitant]
     Active Substance: ACETAMINOPHEN
  3. ADVIL [Concomitant]
     Active Substance: IBUPROFEN

REACTIONS (3)
  - Arthralgia [Not Recovered/Not Resolved]
  - Neoplasm malignant [Unknown]
  - Illness [Unknown]

NARRATIVE: CASE EVENT DATE: 20130101
